FAERS Safety Report 7561559-9 (Version None)
Quarter: 2011Q2

REPORT INFORMATION
  Report Type: 
  Country: None (occurrence: None)
  Receive Date: 20110621
  Receipt Date: 20100429
  Transmission Date: 20111010
  Serious: No
  Sender: FDA-Public Use
  Company Number: US-ASTRAZENECA-2010SE19545

PATIENT
  Sex: Female

DRUGS (5)
  1. PULMICORT FLEXHALER [Suspect]
     Dosage: 2 PUFFS
     Route: 055
     Dates: start: 20100427
  2. HORMONE MEDICATION [Concomitant]
  3. DIAZEPAM [Concomitant]
  4. COMBIVENT [Concomitant]
  5. KEFLEX [Concomitant]

REACTIONS (5)
  - VISION BLURRED [None]
  - COUGH [None]
  - DECREASED APPETITE [None]
  - DRY MOUTH [None]
  - NERVOUSNESS [None]
